FAERS Safety Report 15499890 (Version 1)
Quarter: 2018Q4

REPORT INFORMATION
  Report Type: Spontaneous
  Country: US (occurrence: US)
  Receive Date: 20181008
  Receipt Date: 20181008
  Transmission Date: 20190205
  Serious: Yes (Hospitalization)
  Sender: FDA-Public Use
  Company Number: None

PATIENT
  Sex: Female

DRUGS (5)
  1. PULMOZYME [Suspect]
     Active Substance: DORNASE ALFA
     Indication: CYSTIC FIBROSIS
     Route: 055
     Dates: start: 20171220
  2. TOBI PODHALER [Concomitant]
     Active Substance: TOBRAMYCIN
  3. ORKAMBI [Concomitant]
     Active Substance: IVACAFTOR\LUMACAFTOR
  4. PULMOSAL [Concomitant]
  5. CAYSTON [Concomitant]
     Active Substance: AZTREONAM

REACTIONS (2)
  - Pneumonia [None]
  - Respiratory tract infection [None]
